FAERS Safety Report 25222141 (Version 2)
Quarter: 2025Q2

REPORT INFORMATION
  Report Type: Spontaneous
  Country: IT (occurrence: IT)
  Receive Date: 20250421
  Receipt Date: 20250430
  Transmission Date: 20250716
  Serious: Yes (Other)
  Sender: BRISTOL-MYERS SQUIBB COMPANY
  Company Number: IT-IPSEN Group, Research and Development-2025-08423

PATIENT
  Age: 70 Year
  Sex: Male

DRUGS (3)
  1. NIVOLUMAB [Suspect]
     Active Substance: NIVOLUMAB
     Indication: Product used for unknown indication
     Dates: start: 2023
  2. CABOMETYX [Suspect]
     Active Substance: CABOZANTINIB S-MALATE
     Indication: Product used for unknown indication
     Dates: start: 2023
  3. CABOMETYX [Suspect]
     Active Substance: CABOZANTINIB S-MALATE

REACTIONS (6)
  - Hypothyroidism [Unknown]
  - Anal abscess [Unknown]
  - Gastrointestinal toxicity [Unknown]
  - Anal fistula [Unknown]
  - Rash pruritic [Unknown]
  - Asthenia [Unknown]

NARRATIVE: CASE EVENT DATE: 20230701
